FAERS Safety Report 16479238 (Version 1)
Quarter: 2019Q2

REPORT INFORMATION
  Report Type: Report from Study
  Country: US (occurrence: US)
  Receive Date: 20190626
  Receipt Date: 20190626
  Transmission Date: 20190711
  Serious: Yes (Hospitalization, Other)
  Sender: FDA-Public Use
  Company Number: US-SAOL THERAPEUTICS-2018SAO00958

PATIENT
  Age: 59 Year
  Sex: Female

DRUGS (3)
  1. LIORESAL [Suspect]
     Active Substance: BACLOFEN
     Indication: MUSCLE SPASTICITY
     Dosage: 142.1 ?G, \DAY
     Route: 037
     Dates: start: 20170928, end: 20180813
  2. LIORESAL [Suspect]
     Active Substance: BACLOFEN
     Dosage: 12.1 ?G, \DAY, MIN RATE
     Route: 037
     Dates: start: 20180813, end: 20180813
  3. LIORESAL [Suspect]
     Active Substance: BACLOFEN
     Indication: MULTIPLE SCLEROSIS
     Dosage: 100 ?G, \DAY
     Route: 037
     Dates: start: 20180813, end: 20180813

REACTIONS (7)
  - Somnolence [Recovered/Resolved]
  - Depressed level of consciousness [Recovered/Resolved]
  - Wrong technique in product usage process [Recovered/Resolved]
  - Overdose [Recovered/Resolved]
  - Device infusion issue [Unknown]
  - Lethargy [Recovered/Resolved]
  - Device occlusion [Unknown]

NARRATIVE: CASE EVENT DATE: 20180813
